FAERS Safety Report 9451454 (Version 3)
Quarter: 2014Q1

REPORT INFORMATION
  Report Type: Report from Study
  Country: US (occurrence: US)
  Receive Date: 20130809
  Receipt Date: 20140213
  Transmission Date: 20141002
  Serious: Yes (Other)
  Sender: FDA-Public Use
  Company Number: US-ROCHE-1259896

PATIENT
  Age: 54 Year
  Sex: Female

DRUGS (21)
  1. XOLAIR [Suspect]
     Indication: ASTHMA
     Route: 065
  2. XOLAIR [Suspect]
     Route: 058
  3. XOPENEX HFA [Concomitant]
     Dosage: 1-2 EVERY 12 HOURS
     Route: 065
  4. XOPENEX HFA [Concomitant]
     Dosage: 0.3 MG/3 ML VIA NEBULIZER PRN
     Route: 065
  5. ATROVENT [Concomitant]
     Dosage: 1-2 EVERY 12 HOURS
     Route: 065
  6. CARTIA (UNITED STATES) [Concomitant]
     Dosage: 1 TAB QID
     Route: 065
  7. METFORMIN [Concomitant]
     Dosage: 1 TAB QID
     Route: 048
  8. ONGLYZA [Concomitant]
     Dosage: 1 QID
     Route: 065
  9. ACCOLATE [Concomitant]
     Dosage: 2 QID
     Route: 065
  10. TOPAMAX [Concomitant]
     Dosage: 2  QID
     Route: 065
  11. AZYTER [Concomitant]
     Dosage: 1 QID
     Route: 065
  12. LEVEMIR [Concomitant]
     Dosage: 22 UNITS BEFORE BED
     Route: 065
  13. HYDROCODONE/ACETAMINOPHEN [Concomitant]
     Dosage: 5/500 MG 1 TABLET Q DAY PRN
     Route: 065
  14. PREDNISONE [Concomitant]
     Route: 065
  15. PREDNISONE [Concomitant]
     Route: 065
  16. AUGMENTIN [Concomitant]
     Route: 065
  17. PROMETHAZINE WITH CODEINE [Concomitant]
     Dosage: 1-2 TSP PRN UP TO 6 TIMES DAILY
     Route: 048
  18. THEOPHYLLINE ERT [Concomitant]
     Route: 065
     Dates: start: 20130802
  19. SPIRIVA HANDIHALER [Concomitant]
     Dosage: 1 PUFF BID
     Route: 065
  20. BROVANA [Concomitant]
     Route: 065
  21. ZITHROMAX [Concomitant]

REACTIONS (19)
  - Dyspnoea [Unknown]
  - Upper respiratory tract infection [Unknown]
  - Feeling abnormal [Unknown]
  - Lung disorder [Unknown]
  - Depression [Unknown]
  - Chest pain [Unknown]
  - Heart rate increased [Unknown]
  - Blood urea abnormal [Unknown]
  - Glomerular filtration rate abnormal [Unknown]
  - Blood albumin abnormal [Unknown]
  - Renal pain [Unknown]
  - Oedema [Unknown]
  - Urinary tract infection [Unknown]
  - Fatigue [Unknown]
  - Exercise tolerance decreased [Unknown]
  - Sleep apnoea syndrome [Unknown]
  - Total lung capacity decreased [Unknown]
  - Bronchitis [Unknown]
  - Vaginal infection [Unknown]
